FAERS Safety Report 5872552-6 (Version None)
Quarter: 2008Q3

REPORT INFORMATION
  Report Type: 
  Country: None (occurrence: None)
  Receive Date: 20080902
  Receipt Date: 20080819
  Transmission Date: 20090109
  Serious: Yes (Other)
  Sender: FDA-Public Use
  Company Number: B0534759A

PATIENT
  Sex: 0

DRUGS (4)
  1. ALKERAN [Suspect]
     Indication: METASTASES TO LIVER
     Dosage: 200 MG, SINGLE DOSE, INTRAHEPATIC
     Route: 025
  2. GELOFUSINE [Concomitant]
  3. HEPARIN [Concomitant]
  4. GRANULOCYTE CO. STIM. FACT [Concomitant]

REACTIONS (1)
  - PULMONARY EMBOLISM [None]
